FAERS Safety Report 8771678 (Version 3)
Quarter: 2013Q1

REPORT INFORMATION
  Report Type: Spontaneous
  Country: US (occurrence: US)
  Receive Date: 20120906
  Receipt Date: 20130301
  Transmission Date: 20140127
  Serious: Yes (Hospitalization, Other)
  Sender: FDA-Public Use
  Company Number: US-009507513-1209USA001500

PATIENT
  Sex: Female
  Weight: 136.96 kg

DRUGS (1)
  1. NUVARING [Suspect]
     Indication: CONTRACEPTION
     Dosage: UNK
     Route: 067
     Dates: start: 20060615, end: 20070115

REACTIONS (13)
  - Mammoplasty [Unknown]
  - Deep vein thrombosis [Unknown]
  - Migraine [Unknown]
  - Breast operation [Unknown]
  - Fibrocystic breast disease [Unknown]
  - Oedema peripheral [Unknown]
  - Menstruation irregular [Not Recovered/Not Resolved]
  - Phlebitis superficial [Unknown]
  - Myalgia [Unknown]
  - Pelvic pain [Unknown]
  - Abdominal pain lower [Unknown]
  - Back pain [Unknown]
  - Chest pain [Unknown]
